FAERS Safety Report 8925358 (Version 1)
Quarter: 2012Q4

REPORT INFORMATION
  Report Type: 
  Country: VN (occurrence: VN)
  Receive Date: 20121126
  Receipt Date: 20121126
  Transmission Date: 20130627
  Serious: Yes (Death, Hospitalization, Other)
  Sender: FDA-Public Use
  Company Number: PHHY2012VN107494

PATIENT
  Age: 59 Year
  Sex: Male
  Weight: 52 kg

DRUGS (1)
  1. GLIVEC [Suspect]
     Indication: GASTROINTESTINAL STROMAL TUMOUR
     Dosage: 400 mg, QD
     Route: 048
     Dates: start: 20120312, end: 20120910

REACTIONS (6)
  - Pneumonia [Fatal]
  - Fatigue [Fatal]
  - Dyspnoea [Fatal]
  - Oesophageal ulcer [Unknown]
  - Pyloric stenosis [Unknown]
  - Inflammation [Unknown]
